FAERS Safety Report 6583455-6 (Version None)
Quarter: 2010Q1

REPORT INFORMATION
  Report Type: 
  Country: None (occurrence: None)
  Receive Date: 20100216
  Receipt Date: 20100212
  Transmission Date: 20100710
  Serious: Yes (Other)
  Sender: FDA-Public Use
  Company Number: NL-BAYER-201015331GPV

PATIENT
  Age: 82 Year
  Sex: Male

DRUGS (6)
  1. AVELOX [Suspect]
     Indication: NASOPHARYNGITIS
     Dosage: TOTAL DAILY DOSE: 400 MG  UNIT DOSE: 400 MG
     Route: 048
     Dates: start: 20100127, end: 20100204
  2. MARCUMAR [Suspect]
     Indication: ANTICOAGULANT THERAPY
     Dosage: TOTAL DAILY DOSE: 1 DF
     Route: 065
  3. LASIX [Concomitant]
     Route: 048
  4. COVERSYL [Concomitant]
     Route: 048
  5. VITAMIN K TAB [Concomitant]
  6. ANTIBIOTIC [Concomitant]
     Indication: NASOPHARYNGITIS

REACTIONS (2)
  - HAEMATOCHEZIA [None]
  - INTESTINAL HAEMORRHAGE [None]
